FAERS Safety Report 9812865 (Version 1)
Quarter: 2014Q1

REPORT INFORMATION
  Report Type: Spontaneous
  Country: US (occurrence: US)
  Receive Date: 20140113
  Receipt Date: 20140113
  Transmission Date: 20141002
  Serious: No
  Sender: FDA-Public Use
  Company Number: US-PFIZER INC-2014010046

PATIENT
  Age: 42 Year
  Sex: Male
  Weight: 88.4 kg

DRUGS (3)
  1. LYRICA [Suspect]
     Indication: NEURALGIA
     Dosage: 225 MG, 2X/DAY
     Dates: end: 20140108
  2. AMBIEN [Concomitant]
     Indication: SLEEP DISORDER
     Dosage: 10 MG, 1X/DAY
  3. PERCOCET [Concomitant]
     Indication: PAIN
     Dosage: UNK, 4X/DAY

REACTIONS (1)
  - Malaise [Not Recovered/Not Resolved]
